FAERS Safety Report 4616812-5 (Version None)
Quarter: 2005Q2

REPORT INFORMATION
  Report Type: 
  Country: None (occurrence: None)
  Receive Date: 20050311
  Receipt Date: 20050208
  Transmission Date: 20051028
  Serious: Yes (Death)
  Sender: FDA-Public Use
  Company Number: 2004-00296

PATIENT
  Age: 74 Year
  Sex: Male
  Weight: 91.6 kg

DRUGS (10)
  1. VELCADE [Suspect]
     Indication: MULTIPLE MYELOMA
     Dosage: SEE IMAGE
     Route: 042
     Dates: start: 20040518, end: 20040723
  2. VELCADE [Suspect]
     Indication: MULTIPLE MYELOMA
     Dosage: SEE IMAGE
     Route: 042
     Dates: start: 20040727, end: 20040727
  3. COUMADIN [Concomitant]
  4. ZOCOR [Concomitant]
  5. DILTIAZEM [Concomitant]
  6. DOXAZOSIN (DOXAZOSIN) [Concomitant]
  7. DIOVAN [Concomitant]
  8. DIGOXIN [Concomitant]
  9. FUROSEMIDE [Concomitant]
  10. ALLOPURINOL [Concomitant]

REACTIONS (7)
  - DIARRHOEA [None]
  - DISEASE PROGRESSION [None]
  - ERYTHEMA MULTIFORME [None]
  - FATIGUE [None]
  - HERPES SIMPLEX [None]
  - NAUSEA [None]
  - WHITE BLOOD CELL COUNT DECREASED [None]
